APPROVED DRUG PRODUCT: TRIFLURIDINE
Active Ingredient: TRIFLURIDINE
Strength: 1%
Dosage Form/Route: SOLUTION/DROPS;OPHTHALMIC
Application: A074311 | Product #001 | TE Code: AT
Applicant: SANDOZ INC
Approved: Oct 6, 1995 | RLD: No | RS: No | Type: RX